FAERS Safety Report 10234639 (Version 2)
Quarter: 2014Q3

REPORT INFORMATION
  Report Type: Report from Study
  Country: IT (occurrence: IT)
  Receive Date: 20140613
  Receipt Date: 20140701
  Transmission Date: 20150326
  Serious: Yes (Hospitalization)
  Sender: FDA-Public Use
  Company Number: IT-BIOGENIDEC-2014BI055362

PATIENT
  Age: 32 Year
  Sex: Female

DRUGS (3)
  1. EFFERALGAN [Concomitant]
     Active Substance: ACETAMINOPHEN
  2. AVONEX [Suspect]
     Active Substance: INTERFERON BETA-1A
     Indication: MULTIPLE SCLEROSIS
     Route: 030
     Dates: start: 20131222
  3. TACHIPIRINA [Concomitant]
     Active Substance: ACETAMINOPHEN

REACTIONS (7)
  - Tremor [Unknown]
  - Hypoaesthesia [Unknown]
  - Injection site pain [Recovered/Resolved]
  - Diplopia [Unknown]
  - Eye pain [Unknown]
  - Vertigo [Recovered/Resolved]
  - Dysplasia [Unknown]

NARRATIVE: CASE EVENT DATE: 201401
